FAERS Safety Report 5336605-3 (Version None)
Quarter: 2007Q2

REPORT INFORMATION
  Report Type: 
  Country: None (occurrence: None)
  Receive Date: 20070529
  Receipt Date: 20070517
  Transmission Date: 20071010
  Serious: Yes (Death)
  Sender: FDA-Public Use
  Company Number: AU-JNJFOC-20070403584

PATIENT
  Sex: Female
  Weight: 73.4 kg

DRUGS (3)
  1. DURAGESIC-100 [Suspect]
     Route: 062
  2. DURAGESIC-100 [Suspect]
     Indication: CANCER PAIN
     Route: 062
  3. OXYNORM [Concomitant]
     Indication: PROCEDURAL PAIN

REACTIONS (2)
  - ANALGESIC DRUG LEVEL [None]
  - POISONING [None]
